FAERS Safety Report 8310386-3 (Version None)
Quarter: 2012Q2

REPORT INFORMATION
  Report Type: 
  Country: None (occurrence: None)
  Receive Date: 20120425
  Receipt Date: 20120416
  Transmission Date: 20120825
  Serious: Yes (Hospitalization)
  Sender: FDA-Public Use
  Company Number: JP-ASTRAZENECA-2012SE25752

PATIENT
  Age: 70 Year
  Sex: Male

DRUGS (6)
  1. CRESTOR [Suspect]
     Dosage: 5 MG, DAILY NUMBER OF SEPARATE DOSAGES UNKNOWN
     Route: 048
     Dates: end: 20120201
  2. CRESTOR [Suspect]
     Dosage: 10 MG, DAILY NUMBER OF SEPARATE DOSAGES UNKNOWN
     Route: 048
     Dates: start: 20120201, end: 20120301
  3. AGENTS FOR PEPTIC ULCER [Concomitant]
     Dosage: DOSE UNKNOWN
     Route: 065
     Dates: end: 20120301
  4. CRESTOR [Suspect]
     Indication: HYPERCHOLESTEROLAEMIA
     Route: 048
  5. ANABOLIC STEROIDS AND PREPARATIONS [Concomitant]
     Dosage: DOSE UNKNOWN
     Route: 065
     Dates: end: 20120301
  6. COTRIM [Concomitant]
     Dosage: DOSE UNKNOWN
     Route: 048
     Dates: end: 20120301

REACTIONS (1)
  - LIVER DISORDER [None]
